FAERS Safety Report 10159757 (Version 2)
Quarter: 2014Q2

REPORT INFORMATION
  Report Type: Spontaneous
  Country: US (occurrence: US)
  Receive Date: 20140508
  Receipt Date: 20140521
  Transmission Date: 20141212
  Serious: Yes (Hospitalization)
  Sender: FDA-Public Use
  Company Number: US-GLAXOSMITHKLINE-A1025236A

PATIENT
  Age: 65 Year
  Sex: Female

DRUGS (8)
  1. TYKERB [Suspect]
     Indication: NEOPLASM MALIGNANT
     Dosage: 1250MG PER DAY
     Route: 048
  2. XELODA [Suspect]
     Dosage: 500MG UNKNOWN
     Route: 048
  3. SINGULAR [Concomitant]
     Dosage: 10MG UNKNOWN
     Route: 065
  4. IPRATROPIUM [Concomitant]
     Route: 065
  5. MOMETASONE [Concomitant]
     Route: 065
  6. CROMOLYN SODIUM [Concomitant]
     Route: 065
  7. SUDAFED [Concomitant]
     Dosage: 10MG UNKNOWN
     Route: 065
  8. XOPENEX [Concomitant]
     Route: 055

REACTIONS (8)
  - Enteritis infectious [Unknown]
  - Asthma [Unknown]
  - Skin lesion [Unknown]
  - Rash generalised [Unknown]
  - Dysgeusia [Unknown]
  - Retching [Unknown]
  - Nausea [Unknown]
  - Drug ineffective [Unknown]
